FAERS Safety Report 19962090 (Version 1)
Quarter: 2021Q4

REPORT INFORMATION
  Report Type: Spontaneous
  Country: US (occurrence: US)
  Receive Date: 20211018
  Receipt Date: 20211018
  Transmission Date: 20220303
  Serious: Yes (Other)
  Sender: FDA-Public Use
  Company Number: US-DRREDDYS-LIT/USA/21/0142577

PATIENT
  Age: 3 Year
  Sex: Female

DRUGS (3)
  1. PRIMIDONE [Suspect]
     Active Substance: PRIMIDONE
     Indication: Neurodevelopmental disorder
  2. CLONAZEPAM [Suspect]
     Active Substance: CLONAZEPAM
     Indication: Neurodevelopmental disorder
  3. PROPRANOLOL [Suspect]
     Active Substance: PROPRANOLOL HYDROCHLORIDE
     Indication: Neurodevelopmental disorder

REACTIONS (1)
  - Drug ineffective [Unknown]
